FAERS Safety Report 10157912 (Version 1)
Quarter: 2014Q2

REPORT INFORMATION
  Report Type: Spontaneous
  Country: US (occurrence: US)
  Receive Date: 20140507
  Receipt Date: 20140507
  Transmission Date: 20141212
  Serious: Yes (Other)
  Sender: FDA-Public Use
  Company Number: US-BAYER-2014-065252

PATIENT
  Age: 41 Year
  Sex: Female

DRUGS (1)
  1. MIRENA [Suspect]
     Dosage: UNK
     Dates: start: 200908

REACTIONS (24)
  - Metrorrhagia [None]
  - Premenstrual syndrome [Not Recovered/Not Resolved]
  - Abdominal pain lower [None]
  - Headache [None]
  - Ear pain [None]
  - Pain [None]
  - Constipation [None]
  - Abdominal pain upper [None]
  - Breast tenderness [None]
  - Arthralgia [None]
  - Back pain [Not Recovered/Not Resolved]
  - Arthralgia [Not Recovered/Not Resolved]
  - Nerve compression [Not Recovered/Not Resolved]
  - Tendonitis [None]
  - Musculoskeletal pain [None]
  - Hypoaesthesia [None]
  - Pain in extremity [Not Recovered/Not Resolved]
  - Vision blurred [None]
  - Dry eye [None]
  - Mood swings [None]
  - Anxiety [None]
  - Pruritus [None]
  - Fatigue [Not Recovered/Not Resolved]
  - Diverticulum [None]
